FAERS Safety Report 8505326 (Version 2)
Quarter: 2012Q4

REPORT INFORMATION
  Report Type: 
  Country: US (occurrence: US)
  Receive Date: 20120412
  Receipt Date: 20121004
  Transmission Date: 20130627
  Serious: Yes (Death, Hospitalization, Other)
  Sender: FDA-Public Use
  Company Number: US-ASTELLAS-2012US003398

PATIENT
  Age: 70 None
  Sex: Male
  Weight: 134 kg

DRUGS (24)
  1. PROGRAF [Suspect]
     Indication: RENAL TRANSPLANT
     Dosage: 1.5 mg, bid
     Route: 048
     Dates: start: 20050117
  2. PROGRAF [Suspect]
     Dosage: 2 mg, bid
     Route: 065
  3. MYFORTIC [Concomitant]
     Indication: RENAL TRANSPLANT
     Dosage: 540 mg, bid
     Route: 065
  4. PREDNISONE [Concomitant]
     Indication: RENAL TRANSPLANT
     Dosage: 5 mg, UID/QD
     Route: 065
  5. HYTRIN [Concomitant]
     Indication: BLOOD PRESSURE
     Dosage: 10 mg, bid
     Route: 065
  6. HYDRALAZINE [Concomitant]
     Indication: BLOOD PRESSURE
     Dosage: 50 mg, tid
     Route: 065
  7. ALDOMET                            /00000101/ [Concomitant]
     Indication: BLOOD PRESSURE
     Dosage: 250 mg, tid
     Route: 065
  8. CLONIDINE [Concomitant]
     Indication: BLOOD PRESSURE
     Dosage: 0.3 mg, tid
     Route: 065
  9. METOPROLOL [Concomitant]
     Indication: BLOOD PRESSURE
     Dosage: 50 mg, tid
     Route: 065
  10. LISINOPRIL [Concomitant]
     Indication: BLOOD PRESSURE
     Dosage: 20 mg, bid
     Route: 065
  11. BUMEX [Concomitant]
     Indication: PRODUCT USED FOR UNKNOWN INDICATION
     Dosage: 2 mg, UID/QD
     Route: 065
  12. COUMADIN /00014802/ [Concomitant]
     Indication: ANTICOAGULANT THERAPY
     Dosage: 3.5 mg, UID/QD
     Route: 065
  13. LIPITOR [Concomitant]
     Indication: BLOOD CHOLESTEROL
     Dosage: 80 mg, UID/QD
     Route: 065
  14. PRILOSEC                           /00661201/ [Concomitant]
     Indication: GASTROINTESTINAL DISORDER
     Dosage: 30 mg, UID/QD
     Route: 065
  15. POTASSIUM [Concomitant]
     Indication: PRODUCT USED FOR UNKNOWN INDICATION
     Dosage: 20 mg, bid
     Route: 065
  16. CEROVITE [Concomitant]
     Indication: VITAMIN SUPPLEMENTATION
     Dosage: 1 DF, UID/QD
     Route: 065
  17. HUMALOG [Concomitant]
     Indication: DIABETES MELLITUS
     Dosage: UNK
     Route: 065
  18. GLIMEPIRIDE [Concomitant]
     Indication: DIABETES MELLITUS
     Dosage: 4 mg, bid
     Route: 065
  19. LEVEMIR [Concomitant]
     Indication: DIABETES MELLITUS
     Dosage: 30 U, QHS
     Route: 065
  20. AVODART [Concomitant]
     Indication: PROSTATE CANCER
     Dosage: 0.5 mg, UID/QD
     Route: 065
  21. ACTOS [Concomitant]
     Indication: DIABETES MELLITUS
     Dosage: 45 mg, UID/QD
     Route: 065
  22. ASPIRIN [Concomitant]
     Indication: CARDIAC DISORDER
     Dosage: 325 mg, UID/QD
     Route: 065
  23. TRICOR                             /00090101/ [Concomitant]
     Indication: BLOOD CHOLESTEROL
     Dosage: 48 mg, UID/QD
     Route: 065
  24. PHOSPHORUS [Concomitant]
     Indication: MINERAL SUPPLEMENTATION
     Dosage: 250 mg, bid
     Route: 065

REACTIONS (8)
  - Death [Fatal]
  - Ischaemic ulcer [Recovering/Resolving]
  - Hospice care [Unknown]
  - Coronary arterial stent insertion [Unknown]
  - Coronary arterial stent insertion [Unknown]
  - Coronary arterial stent insertion [Unknown]
  - Peripheral arterial occlusive disease [Unknown]
  - Myocardial infarction [Unknown]
